FAERS Safety Report 8740848 (Version 2)
Quarter: 2013Q1

REPORT INFORMATION
  Report Type: Spontaneous
  Country: US (occurrence: US)
  Receive Date: 20120823
  Receipt Date: 20130124
  Transmission Date: 20140127
  Serious: No
  Sender: FDA-Public Use
  Company Number: US-009507513-1208USA006068

PATIENT
  Sex: Male

DRUGS (3)
  1. PROVENTIL [Suspect]
     Indication: EMPHYSEMA
     Dosage: UNK, PRN
     Dates: start: 200808
  2. PROVENTIL [Suspect]
     Indication: ASTHMA
     Dosage: UNK, PRN
  3. PROVENTIL [Suspect]
     Indication: BRONCHITIS CHRONIC
     Dosage: UNK, PRN

REACTIONS (2)
  - Wheezing [Not Recovered/Not Resolved]
  - Product quality issue [Unknown]
